FAERS Safety Report 4915472-3 (Version None)
Quarter: 2006Q1

REPORT INFORMATION
  Report Type: 
  Country: None (occurrence: None)
  Receive Date: 20060217
  Receipt Date: 20000316
  Transmission Date: 20060701
  Serious: Yes (Hospitalization)
  Sender: FDA-Public Use
  Company Number: US-MERCK-00031670

PATIENT
  Age: 67 Year
  Sex: Female
  Weight: 107 kg

DRUGS (5)
  1. VIOXX [Suspect]
     Indication: ARTHRITIS
     Route: 048
     Dates: start: 19991101
  2. TENORMIN [Suspect]
     Route: 048
  3. ZESTORETIC [Suspect]
     Route: 048
     Dates: end: 20000301
  4. ESTROGENS (UNSPECIFIED) [Concomitant]
     Route: 065
  5. PROGESTERONE [Concomitant]
     Indication: HORMONE REPLACEMENT THERAPY
     Route: 065

REACTIONS (17)
  - ADVERSE EVENT [None]
  - ANAEMIA [None]
  - ANAEMIA OF CHRONIC DISEASE [None]
  - BRADYCARDIA [None]
  - CARDIAC FAILURE CONGESTIVE [None]
  - DIARRHOEA [None]
  - HYPERTENSION [None]
  - HYPOXIA [None]
  - MYOCARDIAL ISCHAEMIA [None]
  - PRURITUS [None]
  - PULMONARY FIBROSIS [None]
  - PULMONARY OEDEMA [None]
  - RENAL CYST [None]
  - RENAL FAILURE ACUTE [None]
  - RENAL FAILURE CHRONIC [None]
  - SKIN DISORDER [None]
  - WEIGHT INCREASED [None]
